FAERS Safety Report 7939637-1 (Version None)
Quarter: 2011Q4

REPORT INFORMATION
  Report Type: 
  Country: None (occurrence: None)
  Receive Date: 20111125
  Receipt Date: 20111114
  Transmission Date: 20120403
  Serious: Yes (Other)
  Sender: FDA-Public Use
  Company Number: PHHY2011ES099772

PATIENT
  Sex: Male

DRUGS (3)
  1. ACOVIL [Concomitant]
     Dosage: 10 MG DAILY
     Route: 048
     Dates: start: 20101018
  2. NEORAL [Suspect]
     Indication: GLOMERULONEPHRITIS
     Dosage: 100 MG/ 12H DAILY
     Route: 048
     Dates: start: 20110901
  3. DOXAZOSIN MESYLATE [Concomitant]
     Dosage: 8MG/12H
     Route: 048

REACTIONS (3)
  - BREAST ENLARGEMENT [None]
  - BREAST PAIN [None]
  - BREAST INDURATION [None]
